FAERS Safety Report 17576556 (Version 2)
Quarter: 2020Q3

REPORT INFORMATION
  Report Type: Other
  Country: US (occurrence: US)
  Receive Date: 20200324
  Receipt Date: 20200827
  Transmission Date: 20201102
  Serious: Yes (Death, Hospitalization, Other)
  Sender: FDA-Public Use
  Company Number: US-ACORDA-ACO_162472_2019

PATIENT
  Age: 72 Year
  Sex: Female

DRUGS (2)
  1. INBRIJA [Suspect]
     Active Substance: LEVODOPA
     Indication: ON AND OFF PHENOMENON
  2. INBRIJA [Suspect]
     Active Substance: LEVODOPA
     Indication: PARKINSON^S DISEASE
     Dosage: 84 MILLIGRAM, PRN
     Dates: start: 20190821

REACTIONS (9)
  - Diarrhoea [Unknown]
  - Dizziness [Unknown]
  - Clostridium difficile infection [Unknown]
  - Hypotension [Unknown]
  - Fall [Unknown]
  - Disorientation [Unknown]
  - Death [Fatal]
  - Femur fracture [Unknown]
  - Dysphagia [Unknown]

NARRATIVE: CASE EVENT DATE: 20200106
